FAERS Safety Report 22964628 (Version 3)
Quarter: 2023Q4

REPORT INFORMATION
  Report Type: Spontaneous
  Country: US (occurrence: US)
  Receive Date: 20230921
  Receipt Date: 20231107
  Transmission Date: 20240109
  Serious: Yes (Other)
  Sender: FDA-Public Use
  Company Number: US-BRISTOL-MYERS SQUIBB COMPANY-2023-132577

PATIENT
  Age: 77 Year
  Sex: Female

DRUGS (1)
  1. POMALYST [Suspect]
     Active Substance: POMALIDOMIDE
     Indication: Plasma cell myeloma
     Dosage: FREQUENCY: TAKE ONE WHOLE CAPSULE BY MOUTH FOR 21 CONSECUTIVE DAYS IN THE EVENING THEN STOP FOR 7 DA
     Route: 048
     Dates: start: 20230803

REACTIONS (2)
  - Cataract [Recovered/Resolved]
  - Eye infection [Recovered/Resolved]
